FAERS Safety Report 7480474-2 (Version None)
Quarter: 2011Q2

REPORT INFORMATION
  Report Type: 
  Country: None (occurrence: None)
  Receive Date: 20110506
  Receipt Date: 20110423
  Transmission Date: 20111010
  Serious: Yes (Hospitalization)
  Sender: FDA-Public Use
  Company Number: 2011SP018597

PATIENT
  Age: 33 Year
  Sex: Female

DRUGS (1)
  1. DESLORATADINE [Suspect]
     Indication: OCULAR HYPERAEMIA
     Dates: start: 20110301

REACTIONS (4)
  - PLATELET COUNT DECREASED [None]
  - GASTRIC POLYPS [None]
  - WHITE BLOOD CELL COUNT DECREASED [None]
  - ANAEMIA [None]
